FAERS Safety Report 4313542-4 (Version None)
Quarter: 2004Q1

REPORT INFORMATION
  Report Type: 
  Country: None (occurrence: None)
  Receive Date: 20040308
  Receipt Date: 20040226
  Transmission Date: 20041129
  Serious: Yes (Other)
  Sender: FDA-Public Use
  Company Number: GB-GLAXOSMITHKLINE-B0324867A

PATIENT
  Age: 38 Year
  Sex: Female
  Weight: 82 kg

DRUGS (5)
  1. AVANDIA [Suspect]
     Indication: DIABETES MELLITUS
     Dosage: 4MG UNKNOWN
     Route: 048
     Dates: start: 20040102, end: 20040212
  2. METFORMIN [Concomitant]
     Indication: DIABETES MELLITUS
     Dosage: 850MG THREE TIMES PER DAY
     Route: 048
     Dates: start: 20040119
  3. OLANZAPINE [Concomitant]
     Indication: AGITATION
     Dosage: 2.5MG TWICE PER DAY
     Route: 048
     Dates: start: 20031128
  4. CITALOPRAM [Concomitant]
     Dosage: 40MG PER DAY
     Route: 048
     Dates: start: 20040119
  5. DICLOFENAC [Concomitant]
     Indication: PAIN
     Dosage: 75MG TWICE PER DAY
     Route: 048
     Dates: start: 20030828

REACTIONS (3)
  - DIZZINESS [None]
  - LIVER FUNCTION TEST ABNORMAL [None]
  - MALAISE [None]
